FAERS Safety Report 10914197 (Version 7)
Quarter: 2019Q2

REPORT INFORMATION
  Report Type: Report from Study
  Country: JP (occurrence: JP)
  Receive Date: 20150313
  Receipt Date: 20190627
  Transmission Date: 20190711
  Serious: Yes (Other)
  Sender: FDA-Public Use
  Company Number: PHJP2015JP002471

PATIENT
  Age: 7 Year
  Sex: Male

DRUGS (34)
  1. SOLU-MEDROL [Concomitant]
     Active Substance: METHYLPREDNISOLONE SODIUM SUCCINATE
     Indication: PRODUCT USED FOR UNKNOWN INDICATION
     Dosage: 600 MG, UNK
     Route: 065
     Dates: start: 20130331, end: 20130402
  2. ILARIS [Suspect]
     Active Substance: CANAKINUMAB
     Dosage: 180 MG, UNK
     Route: 058
     Dates: start: 20140327
  3. ILARIS [Suspect]
     Active Substance: CANAKINUMAB
     Dosage: 112.5 MG, UNK
     Route: 058
     Dates: start: 20130310
  4. ILARIS [Suspect]
     Active Substance: CANAKINUMAB
     Dosage: 112.5 MG, UNK
     Route: 058
     Dates: start: 20130402
  5. PROGRAF [Suspect]
     Active Substance: TACROLIMUS\TACROLIMUS ANHYDROUS
     Indication: HAEMOPHAGOCYTIC LYMPHOHISTIOCYTOSIS
     Dosage: 1 MG, QD
     Route: 048
     Dates: start: 20131101, end: 20140103
  6. AMBISOME [Concomitant]
     Active Substance: AMPHOTERICIN B
     Dosage: 100 MG, UNK
     Route: 042
     Dates: start: 20130926, end: 20131021
  7. ILARIS [Suspect]
     Active Substance: CANAKINUMAB
     Dosage: 195 MG, UNK
     Route: 058
     Dates: start: 20140102
  8. PREDONINE [Suspect]
     Active Substance: PREDNISOLONE
     Indication: CHRONIC INFANTILE NEUROLOGICAL CUTANEOUS AND ARTICULAR SYNDROME
     Dosage: 8 MG, QD
     Route: 048
     Dates: start: 20120409
  9. METHOTREXATE. [Concomitant]
     Active Substance: METHOTREXATE
     Dosage: 7.5 MG, UNK
     Route: 048
     Dates: start: 20120409, end: 20130125
  10. GAMMAGLOBULIN [Concomitant]
     Active Substance: HUMAN IMMUNOGLOBULIN G
     Indication: PRODUCT USED FOR UNKNOWN INDICATION
     Dosage: 2.5 G, UNK
     Route: 065
     Dates: start: 20130331, end: 20130401
  11. ILARIS [Suspect]
     Active Substance: CANAKINUMAB
     Dosage: 144 MG, UNK
     Route: 058
     Dates: start: 20130629
  12. ILARIS [Suspect]
     Active Substance: CANAKINUMAB
     Dosage: 144 MG, UNK
     Route: 058
     Dates: start: 20130813
  13. ILARIS [Suspect]
     Active Substance: CANAKINUMAB
     Dosage: 180 MG, UNK
     Route: 058
     Dates: start: 20140422
  14. SANDIMMUN [Concomitant]
     Active Substance: CYCLOSPORINE
     Indication: PRODUCT USED FOR UNKNOWN INDICATION
     Dosage: 40 MG, UNK
     Route: 065
     Dates: start: 20130322, end: 20130331
  15. ACTEMRA [Concomitant]
     Active Substance: TOCILIZUMAB
     Dosage: 180 MG, UNK
     Route: 065
     Dates: start: 20140501
  16. ILARIS [Suspect]
     Active Substance: CANAKINUMAB
     Dosage: 144 MG, UNK
     Route: 058
     Dates: start: 20130601
  17. ILARIS [Suspect]
     Active Substance: CANAKINUMAB
     Dosage: 144 MG, UNK
     Route: 058
     Dates: start: 20130720
  18. ILARIS [Suspect]
     Active Substance: CANAKINUMAB
     Dosage: 144 MG, UNK
     Route: 058
     Dates: start: 20130910
  19. PREDONINE [Suspect]
     Active Substance: PREDNISOLONE
     Dosage: 4 MG, UNK
     Route: 048
  20. NEORAL-SANDIMMUN [Concomitant]
     Active Substance: CYCLOSPORINE
     Indication: CHRONIC INFANTILE NEUROLOGICAL CUTANEOUS AND ARTICULAR SYNDROME
     Dosage: UNK
     Route: 048
  21. ILARIS [Suspect]
     Active Substance: CANAKINUMAB
     Indication: CHRONIC INFANTILE NEUROLOGICAL CUTANEOUS AND ARTICULAR SYNDROME
     Dosage: 37.5 MG, UNK
     Route: 058
     Dates: start: 20130125
  22. ILARIS [Suspect]
     Active Substance: CANAKINUMAB
     Dosage: 150 MG, UNK
     Route: 058
     Dates: start: 20131113
  23. ILARIS [Suspect]
     Active Substance: CANAKINUMAB
     Dosage: 150 MG, UNK
     Route: 058
     Dates: start: 20131211
  24. ILARIS [Suspect]
     Active Substance: CANAKINUMAB
     Dosage: 195 MG, UNK
     Route: 058
     Dates: start: 20140130
  25. ILARIS [Suspect]
     Active Substance: CANAKINUMAB
     Dosage: 180 MG, UNK
     Route: 058
     Dates: start: 20140227
  26. ACTEMRA [Concomitant]
     Active Substance: TOCILIZUMAB
     Indication: CHRONIC INFANTILE NEUROLOGICAL CUTANEOUS AND ARTICULAR SYNDROME
     Dosage: UNK
     Route: 065
     Dates: start: 20120803, end: 20130111
  27. AMBISOME [Concomitant]
     Active Substance: AMPHOTERICIN B
     Indication: PNEUMONIA
     Dosage: 80 MG, UNK
     Route: 042
     Dates: start: 20130321, end: 20130430
  28. ILARIS [Suspect]
     Active Substance: CANAKINUMAB
     Dosage: 75 MG, UNK
     Route: 058
     Dates: start: 20130215
  29. ILARIS [Suspect]
     Active Substance: CANAKINUMAB
     Dosage: 144 MG, UNK
     Route: 058
     Dates: start: 20130501
  30. ILARIS [Suspect]
     Active Substance: CANAKINUMAB
     Dosage: 150 MG, UNK
     Route: 058
     Dates: start: 20131016
  31. NEORAL-SANDIMMUN [Concomitant]
     Active Substance: CYCLOSPORINE
     Dosage: 100 MG, UNK
     Route: 048
     Dates: start: 20120508, end: 20130514
  32. PREDNISOLONE. [Concomitant]
     Active Substance: PREDNISOLONE
     Indication: CHRONIC INFANTILE NEUROLOGICAL CUTANEOUS AND ARTICULAR SYNDROME
     Dosage: 1 %, UNK
     Route: 048
  33. METHOTREXATE. [Concomitant]
     Active Substance: METHOTREXATE
     Indication: CHRONIC INFANTILE NEUROLOGICAL CUTANEOUS AND ARTICULAR SYNDROME
     Dosage: UNK
     Route: 048
  34. CELLCEPT [Concomitant]
     Active Substance: MYCOPHENOLATE MOFETIL\MYCOPHENOLATE MOFETIL HYDROCHLORIDE
     Indication: HAEMOPHAGOCYTIC LYMPHOHISTIOCYTOSIS
     Dosage: 250 MG, UNK
     Route: 048
     Dates: start: 20140104, end: 20150123

REACTIONS (9)
  - Hypertriglyceridaemia [Not Recovered/Not Resolved]
  - Haemophagocytic lymphohistiocytosis [Recovered/Resolved]
  - Neutropenia [Recovered/Resolved]
  - Anaemia [Unknown]
  - Hepatic function abnormal [Recovering/Resolving]
  - Infection [Recovering/Resolving]
  - Bone marrow failure [Unknown]
  - Hepatic function abnormal [Recovered/Resolved]
  - Hypercholesterolaemia [Not Recovered/Not Resolved]

NARRATIVE: CASE EVENT DATE: 20131001
